FAERS Safety Report 22590982 (Version 1)
Quarter: 2023Q2

REPORT INFORMATION
  Report Type: Spontaneous
  Country: US (occurrence: None)
  Receive Date: 20230611
  Receipt Date: 20230611
  Transmission Date: 20230721
  Serious: Yes (Life-Threatening, Hospitalization)
  Sender: FDA-Public Use
  Company Number: None

PATIENT
  Age: 59 Year
  Sex: Male
  Weight: 90 kg

DRUGS (9)
  1. OZEMPIC [Suspect]
     Active Substance: SEMAGLUTIDE
     Indication: Urine flow decreased
     Dosage: OTHER QUANTITY : 1 INJECTION(S);?FREQUENCY : WEEKLY;?
     Route: 058
     Dates: start: 20230201, end: 20230520
  2. LISINOPRIL [Concomitant]
     Active Substance: LISINOPRIL
  3. AMBIEN [Concomitant]
     Active Substance: ZOLPIDEM TARTRATE
  4. TIZANIDINE [Concomitant]
     Active Substance: TIZANIDINE
  5. PREGABALIN [Concomitant]
     Active Substance: PREGABALIN
  6. MAGNESIUM [Concomitant]
     Active Substance: MAGNESIUM
  7. POTASSIUM [Concomitant]
     Active Substance: POTASSIUM
  8. METFORMIN [Concomitant]
     Active Substance: METFORMIN HYDROCHLORIDE
  9. Vitamin D [Concomitant]

REACTIONS (2)
  - Gastrointestinal haemorrhage [None]
  - Abdominal distension [None]

NARRATIVE: CASE EVENT DATE: 20230524
